FAERS Safety Report 12181556 (Version 1)
Quarter: 2016Q1

REPORT INFORMATION
  Report Type: Spontaneous
  Country: US (occurrence: US)
  Receive Date: 20160315
  Receipt Date: 20160315
  Transmission Date: 20160526
  Serious: No
  Sender: FDA-Public Use
  Company Number: US-MYLANLABS-2015M1014065

PATIENT
  Age: 52 Year
  Sex: Female

DRUGS (1)
  1. DICLOFENAC SODIUM DELAYED-RELEASE [Suspect]
     Active Substance: DICLOFENAC SODIUM
     Dosage: 75 MG, BID
     Route: 048
     Dates: start: 20150425

REACTIONS (2)
  - Drug ineffective [Not Recovered/Not Resolved]
  - Product substitution issue [None]

NARRATIVE: CASE EVENT DATE: 20150426
